FAERS Safety Report 7007129-2 (Version None)
Quarter: 2010Q3

REPORT INFORMATION
  Report Type: 
  Country: None (occurrence: None)
  Receive Date: 20100913
  Receipt Date: 20100902
  Transmission Date: 20110219
  Serious: Yes (Disabling, Other)
  Sender: FDA-Public Use
  Company Number: 2010SP047299

PATIENT
  Age: 61 Year
  Sex: Male

DRUGS (4)
  1. PEG-INTRON [Suspect]
     Indication: HEPATITIS C
     Dosage: REBETOL (RIBAVIRIN  /00816701/)
     Route: 058
     Dates: start: 20051001, end: 20060801
  2. PEG-INTRON [Suspect]
     Indication: HEPATITIS C
     Dosage: REBETOL (RIBAVIRIN  /00816701/)
     Route: 058
     Dates: start: 20051001, end: 20060801
  3. REBETOL [Suspect]
     Indication: HEPATITIS C
     Dates: start: 20051001, end: 20060801
  4. LEVOTHYROXINE SODIUM [Concomitant]

REACTIONS (6)
  - ASTHENIA [None]
  - CHRONIC FATIGUE SYNDROME [None]
  - HEADACHE [None]
  - PRURITUS [None]
  - RASH [None]
  - SUICIDAL IDEATION [None]
